FAERS Safety Report 6094333-3 (Version None)
Quarter: 2009Q1

REPORT INFORMATION
  Report Type: 
  Country: None (occurrence: None)
  Receive Date: 20090223
  Receipt Date: 20090204
  Transmission Date: 20090719
  Serious: Yes (Hospitalization)
  Sender: FDA-Public Use
  Company Number: 200832583GPV

PATIENT
  Age: 59 Year
  Sex: Male

DRUGS (7)
  1. MABCAMPATH (ALEMTUZUMAB) [Suspect]
     Indication: CHRONIC LYMPHOCYTIC LEUKAEMIA
     Dosage: 30 MG; SUBCUTANEOUS
     Route: 058
     Dates: start: 20080331, end: 20080905
  2. FLUDARA [Suspect]
     Indication: CHRONIC LYMPHOCYTIC LEUKAEMIA
     Dosage: 71 MG; ORAL
     Route: 048
     Dates: start: 20080331, end: 20080905
  3. CYCLOPHOSPHAMIDE [Suspect]
     Indication: CHRONIC LYMPHOCYTIC LEUKAEMIA
     Dosage: 445 MG, ORAL
     Route: 048
     Dates: start: 20080331, end: 20080905
  4. AUGMENTIN [Concomitant]
  5. BACTRIM [Concomitant]
  6. VALACYCLOVIR HCL [Concomitant]
  7. PENTACARINAT [Concomitant]

REACTIONS (9)
  - BONE MARROW FAILURE [None]
  - BRONCHIECTASIS [None]
  - BRONCHOPULMONARY ASPERGILLOSIS [None]
  - CHEST PAIN [None]
  - ECZEMA [None]
  - FEBRILE NEUTROPENIA [None]
  - LYMPHADENOPATHY MEDIASTINAL [None]
  - PANCYTOPENIA [None]
  - RASH ERYTHEMATOUS [None]
